FAERS Safety Report 14385784 (Version 2)
Quarter: 2019Q2

REPORT INFORMATION
  Report Type: Spontaneous
  Country: US (occurrence: US)
  Receive Date: 20180115
  Receipt Date: 20190506
  Transmission Date: 20190711
  Serious: Yes (Other)
  Sender: FDA-Public Use
  Company Number: US-SA-2017SA053239

PATIENT
  Age: 39 Year
  Sex: Female
  Weight: 63.5 kg

DRUGS (6)
  1. DOCETAXEL. [Suspect]
     Active Substance: DOCETAXEL
     Dosage: 75 MG/M2,Q3W
     Route: 051
     Dates: start: 20110908, end: 20110908
  2. DOCETAXEL. [Suspect]
     Active Substance: DOCETAXEL
     Indication: BREAST CANCER FEMALE
     Dosage: 75 MG/M2,Q3W
     Route: 042
     Dates: start: 20110526, end: 20110526
  3. CYTOXAN [Concomitant]
     Active Substance: CYCLOPHOSPHAMIDE
     Dosage: UNK UNK,QCY
     Route: 065
  4. ADRIAMYCIN [Concomitant]
     Active Substance: DOXORUBICIN HYDROCHLORIDE
     Dosage: UNK UNK,QCY
     Route: 065
  5. NEOSAR [Concomitant]
     Active Substance: CYCLOPHOSPHAMIDE
     Route: 065
  6. TAMOXIFEN [Concomitant]
     Active Substance: TAMOXIFEN
     Dosage: UNK UNK,UNK
     Route: 065
     Dates: start: 20111119, end: 20120515

REACTIONS (6)
  - Alopecia [Not Recovered/Not Resolved]
  - Impaired quality of life [Unknown]
  - Anxiety [Unknown]
  - Emotional distress [Unknown]
  - Pain [Unknown]
  - Psychological trauma [Unknown]

NARRATIVE: CASE EVENT DATE: 201203
